FAERS Safety Report 4741093-1 (Version None)
Quarter: 2005Q3

REPORT INFORMATION
  Report Type: 
  Country: None (occurrence: None)
  Receive Date: 20050810
  Receipt Date: 20050616
  Transmission Date: 20060218
  Serious: Yes (Other)
  Sender: FDA-Public Use
  Company Number: ES-ROCHE-407845

PATIENT
  Age: 65 Year
  Sex: Female
  Weight: 74 kg

DRUGS (2)
  1. XELODA [Suspect]
     Indication: BREAST CANCER
     Route: 048
  2. XELODA [Suspect]
     Route: 048
     Dates: start: 20050519, end: 20050531

REACTIONS (7)
  - ARTERIAL OCCLUSIVE DISEASE [None]
  - CEREBRAL DISORDER [None]
  - DISORIENTATION [None]
  - ESCHAR [None]
  - HYPOPERFUSION [None]
  - PALMAR-PLANTAR ERYTHRODYSAESTHESIA SYNDROME [None]
  - PERIPHERAL OCCLUSIVE DISEASE [None]
